FAERS Safety Report 16692070 (Version 2)
Quarter: 2019Q3

REPORT INFORMATION
  Report Type: Spontaneous
  Country: JP (occurrence: JP)
  Receive Date: 20190812
  Receipt Date: 20190829
  Transmission Date: 20191004
  Serious: Yes (Hospitalization, Other)
  Sender: FDA-Public Use
  Company Number: JP-TEVA-2019-JP-1090602

PATIENT
  Age: 65 Year
  Sex: Female
  Weight: 39.2 kg

DRUGS (5)
  1. CLOPIDOGREL [Suspect]
     Active Substance: CLOPIDOGREL BISULFATE
     Route: 048
  2. ASPIRIN. [Suspect]
     Active Substance: ASPIRIN
     Indication: ANTIPLATELET THERAPY
     Route: 048
  3. CLOPIDOGREL [Suspect]
     Active Substance: CLOPIDOGREL BISULFATE
     Indication: ANTIPLATELET THERAPY
     Route: 048
  4. HEPARIN [Suspect]
     Active Substance: HEPARIN SODIUM
     Indication: ANTICOAGULANT THERAPY
     Dosage: 5000 UNITS; HEPARIN-ADDED PHYSIOLOGICAL SALINE
     Route: 042
  5. SALINE [Concomitant]
     Active Substance: SODIUM CHLORIDE
     Indication: VEHICLE SOLUTION USE
     Dosage: HEPARIN-ADDED PHYSIOLOGICAL SALINE
     Route: 042

REACTIONS (3)
  - Oesophageal ulcer [Recovered/Resolved]
  - Haematoma [Recovered/Resolved]
  - Oesophageal disorder [Recovered/Resolved]
